FAERS Safety Report 8337659-2 (Version None)
Quarter: 2012Q2

REPORT INFORMATION
  Report Type: 
  Country: None (occurrence: None)
  Receive Date: 20120504
  Receipt Date: 20120504
  Transmission Date: 20120825
  Serious: No
  Sender: FDA-Public Use
  Company Number: None

PATIENT
  Age: 64 Year
  Sex: Female
  Weight: 81.646 kg

DRUGS (1)
  1. VERAMYST [Suspect]
     Indication: MULTIPLE ALLERGIES
     Dosage: |DOSAGETEXT: 1 SPRAY||FREQ: 1 DAILY||ROUTE: OTHER|
     Route: 050
     Dates: start: 20120428, end: 20120430

REACTIONS (1)
  - SNEEZING [None]
